FAERS Safety Report 4944728-3 (Version None)
Quarter: 2006Q1

REPORT INFORMATION
  Report Type: 
  Country: None (occurrence: None)
  Receive Date: 20060123
  Receipt Date: 20051130
  Transmission Date: 20060701
  Serious: Yes (Hospitalization)
  Sender: FDA-Public Use
  Company Number: 2005-BP-15684BP

PATIENT
  Age: 51 Year
  Sex: Male

DRUGS (4)
  1. APTIVUS [Suspect]
     Indication: HIV INFECTION
     Dosage: SEE TEXT (SEE TEXT, APTIVUS/R (2 CAPS) 500MG /200 MG TWICE DAILY PO
     Route: 048
     Dates: start: 20040907
  2. ENFUVIRTIDE (ENFUVIRTIDE) [Concomitant]
  3. TENOFOVIR (TENOFOVIR) [Concomitant]
  4. EPIVIR [Concomitant]

REACTIONS (2)
  - IMMUNE RECONSTITUTION SYNDROME [None]
  - PYREXIA [None]
